FAERS Safety Report 4920583-2 (Version None)
Quarter: 2006Q1

REPORT INFORMATION
  Report Type: 
  Country: None (occurrence: None)
  Receive Date: 20060217
  Receipt Date: 20060207
  Transmission Date: 20060701
  Serious: Yes (Death)
  Sender: FDA-Public Use
  Company Number: US016530

PATIENT
  Age: 20 Year
  Sex: Male

DRUGS (2)
  1. ACTIQ [Suspect]
  2. DURAGESIC-100 [Suspect]

REACTIONS (1)
  - MULTIPLE DRUG OVERDOSE ACCIDENTAL [None]
